FAERS Safety Report 5802116-1 (Version None)
Quarter: 2008Q3

REPORT INFORMATION
  Report Type: 
  Country: None (occurrence: None)
  Receive Date: 20080707
  Receipt Date: 20080704
  Transmission Date: 20090109
  Serious: Yes (Life-Threatening, Hospitalization, Other)
  Sender: FDA-Public Use
  Company Number: PHNU2006DE04094

PATIENT
  Sex: Female

DRUGS (2)
  1. ZOMETA [Suspect]
     Indication: METASTASES TO BONE
     Dosage: 4MG/5ML
     Dates: end: 20060101
  2. AROMASIN [Concomitant]
     Route: 065

REACTIONS (12)
  - ABSCESS JAW [None]
  - ACTINOMYCOSIS [None]
  - ALVEOLITIS [None]
  - BIOPSY SITE UNSPECIFIED ABNORMAL [None]
  - IMPAIRED HEALING [None]
  - MUCOSAL INFLAMMATION [None]
  - ORAL BACTERIAL INFECTION [None]
  - ORAL FUNGAL INFECTION [None]
  - OSTEONECROSIS [None]
  - PRIMARY SEQUESTRUM [None]
  - TOOTH EXTRACTION [None]
  - WOUND TREATMENT [None]
